FAERS Safety Report 15295373 (Version 2)
Quarter: 2018Q3

REPORT INFORMATION
  Report Type: Spontaneous
  Country: US (occurrence: US)
  Receive Date: 20180820
  Receipt Date: 20180910
  Transmission Date: 20181010
  Serious: Yes (Life-Threatening, Hospitalization, Other)
  Sender: FDA-Public Use
  Company Number: US-DRREDDYS-USA/USA/18/0103046

PATIENT
  Age: 24 Year
  Sex: Female

DRUGS (1)
  1. METOPROLOL SUCCINATE. [Suspect]
     Active Substance: METOPROLOL SUCCINATE
     Indication: PRODUCT USED FOR UNKNOWN INDICATION
     Route: 048

REACTIONS (9)
  - Unresponsive to stimuli [Recovering/Resolving]
  - Sinus bradycardia [Recovering/Resolving]
  - Blood pressure decreased [Recovering/Resolving]
  - Cardiac failure acute [Recovering/Resolving]
  - Coma scale abnormal [Recovering/Resolving]
  - Decorticate posture [Recovering/Resolving]
  - Hypothermia [Recovering/Resolving]
  - Suicide attempt [Unknown]
  - Overdose [Recovering/Resolving]
